FAERS Safety Report 8533645-8 (Version None)
Quarter: 2012Q3

REPORT INFORMATION
  Report Type: 
  Country: None (occurrence: None)
  Receive Date: 20120724
  Receipt Date: 20120716
  Transmission Date: 20120928
  Serious: Yes (Hospitalization, Other)
  Sender: FDA-Public Use
  Company Number: US-ELI_LILLY_AND_COMPANY-US201205008284

PATIENT
  Sex: Female

DRUGS (16)
  1. FORTEO [Suspect]
     Indication: OSTEOPOROSIS
     Dosage: 20 UG, QD
     Route: 058
     Dates: start: 20120223
  2. NITROSTAT [Concomitant]
     Indication: CHEST PAIN
     Dosage: UNK
     Route: 060
     Dates: start: 20110701
  3. EFFIENT [Concomitant]
     Indication: STENT PLACEMENT
     Dosage: 10 MG, QD
  4. METFORMIN HYDROCHLORIDE [Concomitant]
     Dosage: 500 MG, BID
     Route: 048
  5. TUSSIONEX [Concomitant]
     Indication: NASOPHARYNGITIS
     Dosage: UNK
  6. LISINOPRIL [Concomitant]
     Dosage: 5 MG, QD
  7. MULTI-VITAMINS [Concomitant]
     Dosage: UNK
  8. PREMARIN [Concomitant]
     Dosage: UNK, OTHER
  9. BUSPIRONE HCL [Concomitant]
     Dosage: 10 MG, BID
  10. MOTRIN [Concomitant]
     Dosage: UNK, PRN
  11. ASPIRIN [Concomitant]
     Indication: STENT PLACEMENT
     Dosage: 325 MG, QD
  12. HYDROCODONE BITARTRATE AND ACETAMINOPHEN [Concomitant]
     Indication: PAIN
     Dosage: 30 DF, PRN
  13. VIACTIV                                 /USA/ [Concomitant]
     Dosage: UNK, QD
  14. VITAMIN B-12 [Concomitant]
     Dosage: 250 UG, QD
     Route: 060
  15. CELEXA [Concomitant]
     Dosage: 40 MG, QD
     Route: 048
  16. KLONOPIN [Concomitant]
     Dosage: 0.5 MG, BID

REACTIONS (4)
  - HAEMORRHAGE [None]
  - ASTHENIA [None]
  - FEMUR FRACTURE [None]
  - FALL [None]
